FAERS Safety Report 9724996 (Version 2)
Quarter: 2013Q4

REPORT INFORMATION
  Report Type: Spontaneous
  Country: PL (occurrence: PL)
  Receive Date: 20131202
  Receipt Date: 20131202
  Transmission Date: 20140711
  Serious: Yes (Disabling)
  Sender: FDA-Public Use
  Company Number: PL-ROCHE-1307843

PATIENT
  Age: 58 Year
  Sex: Male
  Weight: 98 kg

DRUGS (2)
  1. ZELBORAF [Suspect]
     Indication: MALIGNANT MELANOMA
     Dosage: 2X720 MG DAILY
     Route: 048
     Dates: start: 20130801, end: 20130919
  2. DEXAMETHASON [Concomitant]
     Route: 048
     Dates: start: 201307

REACTIONS (2)
  - General physical health deterioration [Unknown]
  - Epilepsy [Unknown]
